FAERS Safety Report 8879209 (Version 2)
Quarter: 2013Q1

REPORT INFORMATION
  Report Type: Spontaneous
  Country: NL (occurrence: None)
  Receive Date: 20121026
  Receipt Date: 20121226
  Transmission Date: 20140127
  Serious: Yes (Other)
  Sender: FDA-Public Use
  Company Number: 2012-3292

PATIENT
  Age: 49 Year
  Sex: Female

DRUGS (6)
  1. SOMATULINE [Suspect]
     Indication: RENAL CYST
     Dosage: 120 MG (120 MG, 1 IN 28 D), SUBCUTANEOUS
     Route: 058
     Dates: start: 20120518, end: 20120813
  2. SOMATULINE [Suspect]
     Indication: HEPATIC CYST
     Dosage: 120 MG (120 MG, 1 IN 28 D), SUBCUTANEOUS
     Route: 058
     Dates: start: 20120518, end: 20120813
  3. SOMATULINE [Suspect]
     Dosage: 120 MG (120 MG, 1 IN 28 D), SUBCUTANEOUS
     Route: 058
     Dates: start: 20120518, end: 20120813
  4. THYRAX [Concomitant]
  5. ENALAPRIL [Concomitant]
  6. CALCIUM [Concomitant]

REACTIONS (3)
  - Renal impairment [None]
  - Fatigue [None]
  - Abnormal faeces [None]
